FAERS Safety Report 9736079 (Version 2)
Quarter: 2013Q4

REPORT INFORMATION
  Report Type: Report from Study
  Country: FR (occurrence: FR)
  Receive Date: 20131206
  Receipt Date: 20131206
  Transmission Date: 20140711
  Serious: Yes (Other)
  Sender: FDA-Public Use
  Company Number: FR-GLAXOSMITHKLINE-B0709131A

PATIENT
  Age: 75 Year
  Sex: Female
  Weight: 50 kg

DRUGS (16)
  1. LAPATINIB [Suspect]
     Indication: BREAST CANCER METASTATIC
     Dosage: 8750MG CUMULATIVE DOSE
     Route: 048
     Dates: start: 20110216
  2. DOCETAXEL [Suspect]
     Indication: BREAST CANCER METASTATIC
     Dosage: 112.5MG PER DAY
     Route: 042
     Dates: start: 20110216
  3. CANDESARTAN [Concomitant]
     Indication: HYPERTENSION
     Dates: start: 20110221
  4. TROSPIUM CHLORIDE [Concomitant]
  5. XANAX [Concomitant]
     Indication: CHEMOTHERAPY
     Dosage: 1TAB TWICE PER DAY
     Dates: start: 20110216, end: 20110219
  6. XANAX [Concomitant]
     Indication: CHEMOTHERAPY
     Dosage: 1TAB PER DAY
     Dates: start: 20110220, end: 20110221
  7. VOGALENE [Concomitant]
     Indication: PROPHYLAXIS OF NAUSEA AND VOMITING
     Dosage: 2TAB THREE TIMES PER DAY
  8. ZOPHREN [Concomitant]
     Dosage: 8MG PER DAY
     Route: 042
     Dates: start: 20110216, end: 20110216
  9. ZOPHREN [Concomitant]
     Indication: PROPHYLAXIS OF NAUSEA AND VOMITING
     Dosage: 8MG AS REQUIRED
     Dates: start: 20110217
  10. AUGMENTIN [Concomitant]
     Indication: COUGH
     Dosage: 1G TWICE PER DAY
     Dates: start: 20110221, end: 20110223
  11. TRIFLUCAN [Concomitant]
     Dosage: 100MG THREE TIMES PER DAY
     Dates: start: 20110223
  12. SODIUM BICARBONATE [Concomitant]
     Dates: start: 20110223
  13. CIFLOX [Concomitant]
     Indication: INFECTION PROPHYLAXIS
     Dosage: 500MG TWICE PER DAY
     Dates: start: 20110223, end: 20110223
  14. IMODIUM [Concomitant]
     Indication: DIARRHOEA
     Dosage: 2MG AS REQUIRED
     Dates: start: 20110226, end: 20110228
  15. ZYRTEC [Concomitant]
     Indication: RASH MORBILLIFORM
     Dates: start: 20110302
  16. CIFLOX [Concomitant]
     Indication: MICTURITION DISORDER

REACTIONS (1)
  - Neutropenia [Recovered/Resolved]
